FAERS Safety Report 25836848 (Version 2)
Quarter: 2025Q4

REPORT INFORMATION
  Report Type: Spontaneous
  Country: PK (occurrence: PK)
  Receive Date: 20250923
  Receipt Date: 20251119
  Transmission Date: 20260119
  Serious: Yes (Other)
  Sender: PFIZER
  Company Number: PK-PFIZER INC-PV202400061640

PATIENT
  Age: 52 Year
  Sex: Female
  Weight: 42 kg

DRUGS (3)
  1. TRAZIMERA [Suspect]
     Active Substance: TRASTUZUMAB-QYYP
     Indication: Breast cancer
     Dosage: 504 MG 1ST DOSE EVERY 3 WEEKS F/B 378 MG
     Route: 042
  2. TRAZIMERA [Suspect]
     Active Substance: TRASTUZUMAB-QYYP
     Dosage: LD 8MG/KG MD 6MG/KG
     Route: 042
     Dates: start: 20240510
  3. TRAZIMERA [Suspect]
     Active Substance: TRASTUZUMAB-QYYP
     Dosage: 378 MG, EVERY 3 WEEKS
     Route: 042
     Dates: start: 20240510, end: 202505

REACTIONS (3)
  - Ascites [Unknown]
  - Infection [Unknown]
  - Off label use [Unknown]
